FAERS Safety Report 8789220 (Version 1)
Quarter: 2012Q4

REPORT INFORMATION
  Report Type: Spontaneous
  Country: US (occurrence: None)
  Receive Date: 20120910
  Receipt Date: 20120910
  Transmission Date: 20130627
  Serious: Yes (Life-Threatening, Other)
  Sender: FDA-Public Use
  Company Number: None

PATIENT
  Age: 58 Year
  Sex: Male
  Weight: 81.65 kg

DRUGS (3)
  1. MORPHINE SULFATE [Suspect]
     Indication: CHRONIC PAIN
     Dosage: UP TO 2 15 MG TABS bid po
     Route: 048
     Dates: start: 20120818, end: 20120909
  2. MORPHINE SULFATE [Suspect]
     Indication: LUMBAR LAMINECTOMY
     Dosage: UP TO 2 15 MG TABS bid po
     Route: 048
     Dates: start: 20120818, end: 20120909
  3. MORPHINE SULFATE [Suspect]
     Indication: FUSION CERVICAL SPINE
     Dosage: UP TO 2 15 MG TABS bid po
     Route: 048
     Dates: start: 20120818, end: 20120909

REACTIONS (7)
  - Respiratory depression [None]
  - Sedation [None]
  - Fatigue [None]
  - Confusional state [None]
  - Chest pain [None]
  - Sensation of heaviness [None]
  - Product quality issue [None]
